FAERS Safety Report 10200714 (Version 1)
Quarter: 2014Q2

REPORT INFORMATION
  Report Type: Other
  Country: TW (occurrence: TW)
  Receive Date: 20140528
  Receipt Date: 20140528
  Transmission Date: 20141212
  Serious: Yes (Hospitalization)
  Sender: FDA-Public Use
  Company Number: TW-BRISTOL-MYERS SQUIBB COMPANY-20865010

PATIENT
  Age: 23 Year
  Sex: Male

DRUGS (1)
  1. TETRACYCLINE HCL [Suspect]

REACTIONS (1)
  - Drug eruption [Unknown]
